FAERS Safety Report 17559273 (Version 1)
Quarter: 2020Q1

REPORT INFORMATION
  Report Type: Spontaneous
  Country: IN (occurrence: IN)
  Receive Date: 20200319
  Receipt Date: 20200319
  Transmission Date: 20200409
  Serious: Yes (Death, Hospitalization, Other)
  Sender: FDA-Public Use
  Company Number: IN-BION-008615

PATIENT
  Age: 45 Year
  Sex: Female

DRUGS (2)
  1. DEXAMETHASONE. [Suspect]
     Active Substance: DEXAMETHASONE
     Indication: ANTIBIOTIC THERAPY
     Route: 042
  2. VALPROIC ACID. [Suspect]
     Active Substance: VALPROIC ACID
     Indication: SEIZURE
     Dosage: 1,000 MG PER DAY IN TWO DIVIDED DOSES WAS ADDED FOR 2 MONTHS

REACTIONS (3)
  - Haemophagocytic lymphohistiocytosis [Fatal]
  - Bone marrow failure [Fatal]
  - Drug reaction with eosinophilia and systemic symptoms [Fatal]
